FAERS Safety Report 5849362-9 (Version None)
Quarter: 2008Q3

REPORT INFORMATION
  Report Type: 
  Country: None (occurrence: None)
  Receive Date: 20080819
  Receipt Date: 20080808
  Transmission Date: 20090109
  Serious: Yes (Hospitalization, Other)
  Sender: FDA-Public Use
  Company Number: US-AMGEN-QUU293396

PATIENT
  Sex: Female
  Weight: 62.7 kg

DRUGS (9)
  1. NEULASTA [Suspect]
     Indication: CHEMOTHERAPY
     Route: 058
     Dates: start: 20080625, end: 20080625
  2. TAXOTERE [Suspect]
     Dates: start: 20080602
  3. ZANTAC [Concomitant]
     Dates: start: 20080509
  4. MIRALAX [Concomitant]
     Dates: start: 20080602
  5. MYLANTA [Concomitant]
     Dates: start: 20080602
  6. ALOXI [Concomitant]
     Dates: start: 20080602
  7. DECADRON SRC [Concomitant]
     Dates: start: 20080602
  8. CYTOXAN [Concomitant]
     Dates: start: 20080602
  9. TAGAMET [Concomitant]

REACTIONS (8)
  - ALOPECIA [None]
  - AMNESIA [None]
  - DRUG HYPERSENSITIVITY [None]
  - FALL [None]
  - HAEMORRHAGE [None]
  - LOSS OF CONSCIOUSNESS [None]
  - RASH ERYTHEMATOUS [None]
  - SYNCOPE [None]
